FAERS Safety Report 7972497-1 (Version None)
Quarter: 2011Q4

REPORT INFORMATION
  Report Type: 
  Country: None (occurrence: None)
  Receive Date: 20111213
  Receipt Date: 20111129
  Transmission Date: 20120403
  Serious: Yes (Hospitalization, Other)
  Sender: FDA-Public Use
  Company Number: DE-RANBAXY-2011RR-50812

PATIENT
  Sex: Female

DRUGS (11)
  1. HYDROCORTISONE [Suspect]
     Indication: ADRENOGENITAL SYNDROME
     Dosage: 10 MG, UNK
     Route: 048
     Dates: start: 20090101, end: 20110430
  2. DEXAMETHASONE [Suspect]
     Indication: ADRENOGENITAL SYNDROME
     Dosage: UNK
     Route: 065
     Dates: start: 19930101
  3. PREDNISOLONE [Suspect]
     Indication: PRODUCT USED FOR UNKNOWN INDICATION
     Dosage: 1MG TO 5 MG
     Route: 048
     Dates: start: 20031201, end: 20090601
  4. LEVAQUIN [Suspect]
     Indication: POST PROCEDURAL INFECTION
     Dosage: 750 MG, QD
     Route: 048
     Dates: start: 20090409
  5. LEVAQUIN [Suspect]
     Indication: BACTERIAL INFECTION
     Dosage: 750 MG, QD
     Route: 065
  6. PREDNISOLONE [Suspect]
     Indication: ADRENOGENITAL SYNDROME
     Dosage: UNK
     Route: 065
     Dates: start: 19930101
  7. PREDNISOLONE [Suspect]
     Dosage: 5 MG TO 800 MG
     Route: 048
     Dates: start: 20090213
  8. HYDROCORTISONE [Suspect]
     Dosage: UNK
     Route: 065
     Dates: start: 19930101
  9. DECADRON [Suspect]
     Indication: ADRENOGENITAL SYNDROME
     Dosage: UNK
     Route: 065
     Dates: start: 19930101
  10. AMLODIPINE [Concomitant]
     Indication: HYPERTENSION
     Dosage: UNK
     Route: 065
     Dates: start: 20000101
  11. HYDROCORTISONE [Suspect]
     Dosage: 5 MG TO 20 MG
     Route: 065
     Dates: start: 20090201, end: 20090401

REACTIONS (5)
  - TENDON DISORDER [None]
  - TRIGGER FINGER [None]
  - TENDON RUPTURE [None]
  - TENOSYNOVITIS STENOSANS [None]
  - TENDONITIS [None]
